FAERS Safety Report 6610463-9 (Version None)
Quarter: 2010Q1

REPORT INFORMATION
  Report Type: 
  Country: None (occurrence: None)
  Receive Date: 20100302
  Receipt Date: 20100218
  Transmission Date: 20100710
  Serious: Yes (Hospitalization)
  Sender: FDA-Public Use
  Company Number: US-PFIZER INC-2010002354

PATIENT
  Sex: Male

DRUGS (2)
  1. SUNITINIB MALATE [Suspect]
     Indication: NEOPLASM
     Dosage: UNK
     Route: 048
     Dates: start: 20090428
  2. IXABEPILONE [Suspect]
     Indication: NEOPLASM
     Dosage: UNK
     Dates: start: 20090421

REACTIONS (1)
  - SMALL INTESTINAL OBSTRUCTION [None]
